FAERS Safety Report 9306656 (Version 1)
Quarter: 2013Q1

REPORT INFORMATION
  Report Type: Spontaneous
  Country: MX (occurrence: None)
  Receive Date: 20130328
  Receipt Date: 20130328
  Transmission Date: 20140127
  Serious: Yes (Other)
  Sender: FDA-Public Use
  Company Number: 2013S1000642

PATIENT
  Age: 47 Year
  Sex: Male

DRUGS (4)
  1. REDEVANT (PITAVASTATIN) [Suspect]
     Indication: BLOOD CHOLESTEROL INCREASED
     Route: 048
     Dates: start: 201206
  2. REDEVANT (PITAVASTATIN) [Suspect]
     Indication: BLOOD TRIGLYCERIDES INCREASED
     Route: 048
     Dates: start: 201206
  3. TAMSULOSIN [Concomitant]
  4. LOSARTAN [Concomitant]

REACTIONS (1)
  - Blood pressure increased [None]
